FAERS Safety Report 5603637-7 (Version None)
Quarter: 2008Q1

REPORT INFORMATION
  Report Type: 
  Country: None (occurrence: None)
  Receive Date: 20080122
  Receipt Date: 20080107
  Transmission Date: 20080703
  Serious: Yes (Other)
  Sender: FDA-Public Use
  Company Number: GXBR2008US00492

PATIENT

DRUGS (2)
  1. HYDROCHLOROTHIAZIDE [Suspect]
  2. METFORMIN HCL [Suspect]

REACTIONS (1)
  - CIRRHOSIS ALCOHOLIC [None]
